FAERS Safety Report 8995674 (Version 1)
Quarter: 2013Q1

REPORT INFORMATION
  Report Type: Spontaneous
  Country: US (occurrence: US)
  Receive Date: 20130103
  Receipt Date: 20130103
  Transmission Date: 20140127
  Serious: No
  Sender: FDA-Public Use
  Company Number: US-ABBOTT-12P-163-0988713-00

PATIENT
  Sex: Female
  Weight: 54.48 kg

DRUGS (4)
  1. SYNTHROID [Suspect]
     Indication: HYPOTHYROIDISM
     Dates: start: 201205, end: 201209
  2. SYNTHROID [Suspect]
     Dates: start: 20120926
  3. SYNTHROID [Suspect]
     Dates: start: 2002, end: 201205
  4. SYNTHROID [Suspect]
     Dates: start: 1997, end: 2002

REACTIONS (4)
  - Asthenopia [Not Recovered/Not Resolved]
  - Headache [Not Recovered/Not Resolved]
  - Palpitations [Not Recovered/Not Resolved]
  - Dizziness [Not Recovered/Not Resolved]
